FAERS Safety Report 14733900 (Version 1)
Quarter: 2018Q2

REPORT INFORMATION
  Report Type: Spontaneous
  Country: US (occurrence: US)
  Receive Date: 20180409
  Receipt Date: 20180409
  Transmission Date: 20180711
  Serious: No
  Sender: FDA-Public Use
  Company Number: US-GLAXOSMITHKLINE-US2018GSK058257

PATIENT
  Sex: Female

DRUGS (1)
  1. CARVEDILOL TABLET [Suspect]
     Active Substance: CARVEDILOL
     Indication: PRODUCT USED FOR UNKNOWN INDICATION
     Dosage: UNK

REACTIONS (12)
  - Nausea [Unknown]
  - Wrong technique in product usage process [Unknown]
  - Fatigue [Unknown]
  - Therapeutic response decreased [Unknown]
  - Cough [Unknown]
  - Off label use [Unknown]
  - Allergic reaction to excipient [Unknown]
  - Product substitution issue [Unknown]
  - Therapeutic response changed [Unknown]
  - Swelling [Unknown]
  - Pruritus [Unknown]
  - Aortic aneurysm [Unknown]
